FAERS Safety Report 6397158-4 (Version None)
Quarter: 2009Q4

REPORT INFORMATION
  Report Type: 
  Country: None (occurrence: None)
  Receive Date: 20091012
  Receipt Date: 20091006
  Transmission Date: 20100525
  Serious: Yes (Other)
  Sender: FDA-Public Use
  Company Number: B0597312A

PATIENT
  Age: 36 Year
  Sex: Female

DRUGS (2)
  1. TYKERB [Suspect]
     Route: 065
     Dates: start: 20080901
  2. XELODA [Suspect]
     Indication: DRUG USE FOR UNKNOWN INDICATION
     Route: 065
     Dates: start: 20080901

REACTIONS (1)
  - DRUG TOXICITY [None]
